FAERS Safety Report 5170064-9 (Version None)
Quarter: 2006Q4

REPORT INFORMATION
  Report Type: 
  Country: None (occurrence: None)
  Receive Date: 20061212
  Receipt Date: 20060413
  Transmission Date: 20070319
  Serious: Yes (Hospitalization, Other)
  Sender: FDA-Public Use
  Company Number: US-ELI_LILLY_AND_COMPANY-US200604002432

PATIENT
  Age: 68 Year
  Sex: Male

DRUGS (11)
  1. FENTANYL [Concomitant]
  2. CYMBALTA [Suspect]
     Indication: DEPRESSION
     Dosage: 60 MG, UNK
     Dates: start: 20051206, end: 20060101
  3. CYMBALTA [Suspect]
     Dosage: 30 MG, DAILY (1/D)
     Dates: start: 20051111, end: 20051205
  4. VICODIN [Concomitant]
  5. NABUMETONE [Concomitant]
  6. ALTACE [Concomitant]
     Dosage: 10 MG, UNK
  7. GLIPIZIDE [Concomitant]
     Dosage: 5 MG, 2/D
  8. MAGNESIUM SULFATE [Concomitant]
     Dosage: 240 MG, 2/D
  9. SINGULAIR [Concomitant]
  10. ASPIRIN [Concomitant]
     Dosage: 81 MG, UNK
  11. STOOL SOFTENER [Concomitant]

REACTIONS (24)
  - ALANINE AMINOTRANSFERASE INCREASED [None]
  - AMNESIA [None]
  - ASPARTATE AMINOTRANSFERASE INCREASED [None]
  - CHILLS [None]
  - CONSTIPATION [None]
  - CYTOMEGALOVIRUS INFECTION [None]
  - DISTURBANCE IN ATTENTION [None]
  - DIVERTICULITIS [None]
  - DYSPEPSIA [None]
  - GASTRITIS [None]
  - GASTROOESOPHAGEAL REFLUX DISEASE [None]
  - GINGIVAL BLEEDING [None]
  - HAEMORRHOIDS [None]
  - HEPATIC ENZYME INCREASED [None]
  - ILEITIS [None]
  - INTESTINAL POLYP [None]
  - IRRITABLE BOWEL SYNDROME [None]
  - LARGE INTESTINAL ULCER [None]
  - LOSS OF LIBIDO [None]
  - MENTAL IMPAIRMENT [None]
  - MOOD SWINGS [None]
  - POLYP [None]
  - SELF INJURIOUS BEHAVIOUR [None]
  - TREMOR [None]
